FAERS Safety Report 10082549 (Version 1)
Quarter: 2014Q2

REPORT INFORMATION
  Report Type: Spontaneous
  Country: US (occurrence: US)
  Receive Date: 20140416
  Receipt Date: 20140416
  Transmission Date: 20141212
  Serious: No
  Sender: FDA-Public Use
  Company Number: US-MALLINCKRODT-T201401340

PATIENT
  Sex: Female

DRUGS (9)
  1. METHYLIN [Suspect]
     Indication: DISTURBANCE IN ATTENTION
     Dosage: 20 MG, TID
     Route: 048
     Dates: start: 2013
  2. METHYLIN [Suspect]
     Indication: OBSESSIVE-COMPULSIVE DISORDER
     Dosage: UNK
     Route: 048
     Dates: end: 2013
  3. METHYLIN [Suspect]
     Indication: ASPERGER^S DISORDER
  4. ZOLOFT [Concomitant]
     Indication: DEPRESSION
     Dosage: 100 MG, QD
     Dates: start: 201312
  5. LISINOPRIL AND HYDROCHLOROTHIAZIDE [Concomitant]
     Indication: HYPERTENSION
     Dosage: 25/25 MG , QD
     Dates: start: 2011
  6. VERAPAMIL [Concomitant]
     Indication: HYPERTENSION
     Dosage: 240 MG, QD
     Dates: start: 2011
  7. SYNTHROID [Concomitant]
     Indication: THYROIDECTOMY
     Dosage: .15 MG, QD
     Dates: start: 201203
  8. LUMIGAN [Concomitant]
     Dosage: 1 DROP EACH EYE
     Dates: start: 2003
  9. GABAPENTIN [Concomitant]
     Dosage: 800 MG TID
     Dates: start: 2013

REACTIONS (4)
  - Flatulence [Not Recovered/Not Resolved]
  - Diarrhoea [Not Recovered/Not Resolved]
  - Intentional product misuse [Unknown]
  - Drug effect decreased [Not Recovered/Not Resolved]
